FAERS Safety Report 7761778-2 (Version None)
Quarter: 2011Q3

REPORT INFORMATION
  Report Type: 
  Country: None (occurrence: None)
  Receive Date: 20110920
  Receipt Date: 20110914
  Transmission Date: 20111222
  Serious: Yes (Death)
  Sender: FDA-Public Use
  Company Number: PHEH2011US04409

PATIENT
  Sex: Male

DRUGS (13)
  1. FLONASE [Concomitant]
  2. TEMAZEPAM [Concomitant]
  3. MULTIVITES [Concomitant]
  4. FEXOFENADINE [Concomitant]
  5. FUROSEMIDE [Concomitant]
  6. ASPIRIN [Concomitant]
  7. BENICAR [Concomitant]
  8. KLOR-CON [Concomitant]
  9. GLEEVEC [Suspect]
     Indication: SMALL INTESTINE CARCINOMA
     Dosage: 400 MG, DAILY
     Route: 048
     Dates: start: 20110624
  10. BISOPROLOL FUMARATE [Concomitant]
  11. LEXAPRO [Concomitant]
  12. PREVACID [Concomitant]
  13. GLUCOSAMINE [Concomitant]

REACTIONS (1)
  - DEATH [None]
